FAERS Safety Report 14692441 (Version 1)
Quarter: 2018Q1

REPORT INFORMATION
  Report Type: Spontaneous
  Country: US (occurrence: US)
  Receive Date: 20180329
  Receipt Date: 20180329
  Transmission Date: 20180509
  Serious: No
  Sender: FDA-Public Use
  Company Number: US-PFIZER INC-2018124709

PATIENT
  Age: 67 Year
  Sex: Female

DRUGS (1)
  1. SERTRALINE HCL [Suspect]
     Active Substance: SERTRALINE HYDROCHLORIDE
     Dosage: UNK

REACTIONS (5)
  - Drug ineffective [Unknown]
  - Disorientation [Unknown]
  - Drug tolerance [Unknown]
  - Feeling abnormal [Unknown]
  - Thinking abnormal [Unknown]
